FAERS Safety Report 19552158 (Version 2)
Quarter: 2022Q2

REPORT INFORMATION
  Report Type: Spontaneous
  Country: GB (occurrence: GB)
  Receive Date: 20210715
  Receipt Date: 20220404
  Transmission Date: 20220720
  Serious: Yes (Other)
  Sender: FDA-Public Use
  Company Number: GB-MHRA-EYC 00255503

PATIENT
  Age: 7 Year
  Sex: Male
  Weight: 23.2 kg

DRUGS (1)
  1. AMOXICILLIN [Suspect]
     Active Substance: AMOXICILLIN
     Indication: Tooth abscess
     Dosage: 5 MILLILITER, 3 TIMES A DAY
     Route: 048
     Dates: start: 20210622

REACTIONS (1)
  - Rash macular [Recovering/Resolving]

NARRATIVE: CASE EVENT DATE: 20210629
